FAERS Safety Report 17445378 (Version 1)
Quarter: 2020Q1

REPORT INFORMATION
  Report Type: Spontaneous
  Country: IL (occurrence: IL)
  Receive Date: 20200221
  Receipt Date: 20200221
  Transmission Date: 20200409
  Serious: Yes (Other)
  Sender: FDA-Public Use
  Company Number: NVSC2020IL043026

PATIENT
  Age: 14 Year
  Sex: Male

DRUGS (1)
  1. CYCLOSPORINE. [Suspect]
     Active Substance: CYCLOSPORINE
     Indication: GRAFT VERSUS HOST DISEASE
     Dosage: UNK
     Route: 065

REACTIONS (5)
  - Acute myeloid leukaemia [Unknown]
  - Thrombocytopenia [Unknown]
  - Acute graft versus host disease [Unknown]
  - Liver function test abnormal [Unknown]
  - Therapeutic response decreased [Unknown]
